FAERS Safety Report 7631450-8 (Version None)
Quarter: 2011Q3

REPORT INFORMATION
  Report Type: 
  Country: None (occurrence: None)
  Receive Date: 20110725
  Receipt Date: 20110711
  Transmission Date: 20111222
  Serious: Yes (Hospitalization, Other)
  Sender: FDA-Public Use
  Company Number: DE-ELI_LILLY_AND_COMPANY-DE201107002692

PATIENT
  Age: 57 Year
  Sex: Male
  Weight: 70 kg

DRUGS (4)
  1. AMLODIPINE [Concomitant]
  2. VALPROATE SODIUM [Concomitant]
  3. SEROQUEL [Concomitant]
  4. CYMBALTA [Suspect]
     Dosage: 60 MG, UNKNOWN

REACTIONS (3)
  - ENDOTRACHEAL INTUBATION [None]
  - SUICIDE ATTEMPT [None]
  - COMA [None]
